FAERS Safety Report 9543710 (Version 1)
Quarter: 2013Q2

REPORT INFORMATION
  Report Type: Spontaneous
  Country: US (occurrence: None)
  Receive Date: 20130524
  Receipt Date: 20130524
  Transmission Date: 20140414
  Serious: Yes (Hospitalization)
  Sender: FDA-Public Use
  Company Number: PHEH2012US024014

PATIENT
  Age: 64 Year
  Sex: Female

DRUGS (1)
  1. GILENYA (FINGOLIMOD) CAPSULE, 0.5MG [Suspect]
     Indication: MULTIPLE SCLEROSIS
     Route: 048
     Dates: start: 20110203, end: 20121227

REACTIONS (9)
  - Herpes zoster [None]
  - Multiple sclerosis [None]
  - Pain [None]
  - Eye pain [None]
  - Lacrimation increased [None]
  - Hypoaesthesia [None]
  - Skin irritation [None]
  - Headache [None]
  - Speech disorder [None]
